FAERS Safety Report 15667189 (Version 2)
Quarter: 2021Q4

REPORT INFORMATION
  Report Type: Spontaneous
  Country: US (occurrence: US)
  Receive Date: 20181128
  Receipt Date: 20211015
  Transmission Date: 20220303
  Serious: No
  Sender: FDA-Public Use
  Company Number: US-ROCHE-2187792

PATIENT
  Age: 46 Year
  Sex: Female
  Weight: 68.55 kg

DRUGS (16)
  1. OCREVUS [Suspect]
     Active Substance: OCRELIZUMAB
     Indication: Secondary progressive multiple sclerosis
     Dosage: ONGOING: UNKNOWN, 1ST HALF DOSE?SECOND DOSE ON 23/FEB/2018 AND FULL DOSE ON 10/AUG/2018
     Route: 041
     Dates: start: 20180209
  2. RECLAST [Suspect]
     Active Substance: ZOLEDRONIC ACID
     Indication: Osteoporosis
     Route: 065
     Dates: start: 20180524, end: 20180524
  3. VALIUM [Suspect]
     Active Substance: DIAZEPAM
     Indication: Product used for unknown indication
     Route: 065
  4. BACLOFEN [Concomitant]
     Active Substance: BACLOFEN
     Indication: Muscle spasticity
     Dosage: 3 EVERY AM, 2 MIDDAY, AND 3 EVERY PM
     Route: 048
  5. DETROL LA [Concomitant]
     Active Substance: TOLTERODINE TARTRATE
     Route: 048
  6. PROVIGIL [Concomitant]
     Active Substance: MODAFINIL
     Route: 048
  7. DOMPERAMOL [Concomitant]
     Route: 048
  8. VITAMIN C [Concomitant]
     Active Substance: ASCORBIC ACID
     Route: 048
  9. TUMS [Concomitant]
     Active Substance: CALCIUM CARBONATE
     Route: 048
  10. CALCIUM CARBONATE\CHOLECALCIFEROL [Concomitant]
     Active Substance: CALCIUM CARBONATE\CHOLECALCIFEROL
     Route: 048
  11. VITAMIN D2 [Concomitant]
     Active Substance: ERGOCALCIFEROL
     Route: 048
  12. FOLIC ACID [Concomitant]
     Active Substance: FOLIC ACID
     Route: 048
  13. LYRICA [Concomitant]
     Active Substance: PREGABALIN
     Indication: Tremor
     Route: 048
  14. LYRICA [Concomitant]
     Active Substance: PREGABALIN
  15. OMEPRAZOLE [Concomitant]
     Active Substance: OMEPRAZOLE
     Route: 048
  16. BOTOX [Concomitant]
     Active Substance: ONABOTULINUMTOXINA
     Dosage: INJECTION, HAS GONE AS LONG AS 1 YEAR BETWEEN DOSES, DID RECEIVE ON 19/APR/2019

REACTIONS (16)
  - Urticaria [Unknown]
  - Paraesthesia oral [Unknown]
  - Feeling abnormal [Unknown]
  - Rash [Unknown]
  - Rash pruritic [Recovered/Resolved]
  - Ill-defined disorder [Unknown]
  - Movement disorder [Unknown]
  - Fall [Unknown]
  - Arthropathy [Unknown]
  - Fatigue [Unknown]
  - Asthenia [Unknown]
  - White blood cell count increased [Unknown]
  - JC polyomavirus test positive [Not Recovered/Not Resolved]
  - Delayed recovery from anaesthesia [Recovered/Resolved]
  - Road traffic accident [Unknown]
  - Drug hypersensitivity [Unknown]

NARRATIVE: CASE EVENT DATE: 20180209
